FAERS Safety Report 17199695 (Version 2)
Quarter: 2020Q1

REPORT INFORMATION
  Report Type: Spontaneous
  Country: PL (occurrence: PL)
  Receive Date: 20191226
  Receipt Date: 20200130
  Transmission Date: 20200409
  Serious: Yes (Hospitalization)
  Sender: FDA-Public Use
  Company Number: PL-BIOGEN-2019BI00819253

PATIENT
  Age: 53 Year
  Sex: Female
  Weight: 70 kg

DRUGS (5)
  1. PROPANOLOL [Concomitant]
     Active Substance: PROPRANOLOL HYDROCHLORIDE
     Indication: ESSENTIAL HYPERTENSION
     Dosage: 10 MG 1-0-1
     Route: 065
  2. SPINRAZA [Suspect]
     Active Substance: NUSINERSEN
     Indication: SPINAL MUSCULAR ATROPHY
     Route: 065
     Dates: start: 20191212
  3. GLUCOPHAGE [Concomitant]
     Active Substance: METFORMIN HYDROCHLORIDE
     Indication: TYPE 2 DIABETES MELLITUS
     Dosage: 0-0-1
     Route: 065
  4. VIVACE (NOS) [Concomitant]
     Indication: ESSENTIAL HYPERTENSION
     Dosage: 1.25 MG 0-0-1
     Route: 065
  5. MILURIT [Concomitant]
     Active Substance: ALLOPURINOL
     Indication: NEPHROLITHIASIS
     Dosage: 100 MG 1-0-0
     Route: 065

REACTIONS (7)
  - Dysuria [Unknown]
  - Neuralgia [Unknown]
  - Hypersensitivity [Unknown]
  - Pyrexia [Unknown]
  - Arthralgia [Unknown]
  - Atelectasis [Unknown]
  - Spinal pain [Unknown]

NARRATIVE: CASE EVENT DATE: 20191215
